FAERS Safety Report 18276899 (Version 1)
Quarter: 2020Q3

REPORT INFORMATION
  Report Type: Spontaneous
  Country: US (occurrence: US)
  Receive Date: 20200917
  Receipt Date: 20200917
  Transmission Date: 20201103
  Serious: No
  Sender: FDA-Public Use
  Company Number: US-BAYER-2020-199104

PATIENT
  Age: 38 Year
  Sex: Female

DRUGS (1)
  1. MIRENA [Suspect]
     Active Substance: LEVONORGESTREL
     Indication: CONTRACEPTION
     Dosage: 20?G PER DAY, CONTINUOUSLY
     Route: 015
     Dates: start: 20190307, end: 20200910

REACTIONS (8)
  - Depression [Not Recovered/Not Resolved]
  - Crying [Recovering/Resolving]
  - Anxiety [Not Recovered/Not Resolved]
  - Asthenia [Recovering/Resolving]
  - Loss of libido [Not Recovered/Not Resolved]
  - Anger [Recovering/Resolving]
  - Mood swings [Recovering/Resolving]
  - Obsessive thoughts [Not Recovered/Not Resolved]

NARRATIVE: CASE EVENT DATE: 20190314
